FAERS Safety Report 7912889-X (Version None)
Quarter: 2011Q4

REPORT INFORMATION
  Report Type: 
  Country: None (occurrence: None)
  Receive Date: 20111114
  Receipt Date: 20111021
  Transmission Date: 20120403
  Serious: Yes (Other)
  Sender: FDA-Public Use
  Company Number: US-PFIZER INC-2011227644

PATIENT
  Sex: Male
  Weight: 108 kg

DRUGS (2)
  1. LATANOPROST [Suspect]
     Indication: GLAUCOMA
     Dosage: 1 GTT, BOTH EYES
     Route: 047
     Dates: end: 20110922
  2. LATANOPROST [Suspect]
     Indication: INTRAOCULAR PRESSURE INCREASED

REACTIONS (4)
  - EYE INFECTION [None]
  - GLAUCOMA [None]
  - EYE DISORDER [None]
  - EYE IRRITATION [None]
